FAERS Safety Report 19211571 (Version 1)
Quarter: 2021Q2

REPORT INFORMATION
  Report Type: Spontaneous
  Country: US (occurrence: US)
  Receive Date: 20210503
  Receipt Date: 20210503
  Transmission Date: 20210717
  Serious: No
  Sender: FDA-Public Use
  Company Number: None

PATIENT
  Age: 45 Year
  Sex: Male
  Weight: 134 kg

DRUGS (2)
  1. CASIRIVIMAB (INV?CASIRIVIMAB 120MG/ML INJ SOLN) [Suspect]
     Active Substance: CASIRIVIMAB
     Dosage: ?          OTHER ROUTE:IV?
     Route: 042
     Dates: start: 20210424, end: 20210424
  2. IMDEVIMAB (INV?IMDEVIMAB 120MG/ML INJ,SOLN) [Suspect]
     Active Substance: IMDEVIMAB
     Dosage: ?          OTHER ROUTE:IV?
     Route: 042
     Dates: start: 20210424, end: 20210424

REACTIONS (3)
  - Nausea [None]
  - Yawning [None]
  - Vomiting [None]

NARRATIVE: CASE EVENT DATE: 20210424
